FAERS Safety Report 14824604 (Version 6)
Quarter: 2018Q4

REPORT INFORMATION
  Report Type: Report from Study
  Country: DE (occurrence: DE)
  Receive Date: 20180429
  Receipt Date: 20181108
  Transmission Date: 20190204
  Serious: Yes (Hospitalization, Other)
  Sender: FDA-Public Use
  Company Number: DE-BRISTOL-MYERS SQUIBB COMPANY-BMS-2017-084716

PATIENT
  Age: 65 Year
  Sex: Male

DRUGS (2)
  1. IPILIMUMAB [Suspect]
     Active Substance: IPILIMUMAB
     Indication: MALIGNANT MELANOMA
     Dosage: 280.0 MG, Q3WK
     Route: 065
     Dates: start: 20170807, end: 20170918
  2. NIVOLUMAB [Suspect]
     Active Substance: NIVOLUMAB
     Indication: MALIGNANT MELANOMA
     Dosage: 94.0 MG, Q3WK
     Route: 042
     Dates: start: 20170807, end: 20170918

REACTIONS (5)
  - Urinary tract infection [Recovered/Resolved]
  - Colitis [Recovered/Resolved]
  - Malaise [Recovered/Resolved]
  - Pulmonary embolism [Recovered/Resolved]
  - General physical health deterioration [Recovered/Resolved]

NARRATIVE: CASE EVENT DATE: 20170814
